FAERS Safety Report 9724869 (Version 2)
Quarter: 2014Q1

REPORT INFORMATION
  Report Type: Spontaneous
  Country: US (occurrence: US)
  Receive Date: 20131202
  Receipt Date: 20140203
  Transmission Date: 20141002
  Serious: Yes (Death, Hospitalization)
  Sender: FDA-Public Use
  Company Number: US-B.I. PHARMACEUTICALS,INC./RIDGEFIELD-2013-BI-39921BP

PATIENT
  Sex: Female
  Weight: 77.11 kg

DRUGS (9)
  1. PRADAXA [Suspect]
     Indication: ATRIAL FIBRILLATION
     Dosage: 300 MG
     Dates: start: 20110126, end: 20111206
  2. ARICEPT [Concomitant]
     Dosage: 10 MG
     Route: 048
  3. NORMODYNE [Concomitant]
     Dosage: 600 MG
     Route: 048
  4. PRILOSEC [Concomitant]
     Dosage: 20 MG
     Route: 048
  5. PRINIVIL [Concomitant]
     Dosage: 20 MG
     Route: 048
  6. NORVASC [Concomitant]
     Dosage: 10 MG
     Route: 048
  7. POTASSIUM CHLORIDE [Concomitant]
     Dosage: 20 MEQ
     Route: 048
  8. LASIX [Concomitant]
     Route: 048
  9. SILVADENE [Concomitant]
     Route: 061

REACTIONS (4)
  - Death [Fatal]
  - Haemorrhage [Unknown]
  - Microcytic anaemia [Unknown]
  - Cardiac failure congestive [Unknown]
